FAERS Safety Report 23547367 (Version 4)
Quarter: 2025Q3

REPORT INFORMATION
  Report Type: Spontaneous
  Country: EU (occurrence: EU)
  Receive Date: 20240221
  Receipt Date: 20250925
  Transmission Date: 20251020
  Serious: Yes (Hospitalization, Other)
  Sender: AUROBINDO
  Company Number: EU-AFSSAPS-AN2024000165

PATIENT
  Age: 60 Year
  Sex: Male
  Weight: 65 kg

DRUGS (2)
  1. LEVOFLOXACIN [Suspect]
     Active Substance: LEVOFLOXACIN
     Indication: Urinary tract infection
     Route: 065
     Dates: start: 20240105, end: 20240108
  2. AMBISOME [Suspect]
     Active Substance: AMPHOTERICIN B
     Indication: Urinary tract infection
     Route: 042
     Dates: start: 20231226, end: 20240108

REACTIONS (1)
  - Acute kidney injury [Recovering/Resolving]

NARRATIVE: CASE EVENT DATE: 20240107
